FAERS Safety Report 21381045 (Version 1)
Quarter: 2022Q3

REPORT INFORMATION
  Report Type: Spontaneous
  Country: US (occurrence: US)
  Receive Date: 20220927
  Receipt Date: 20220927
  Transmission Date: 20221026
  Serious: No
  Sender: FDA-Public Use
  Company Number: US-TEVA-2022-US-2073113

PATIENT
  Sex: Male

DRUGS (1)
  1. AUSTEDO [Suspect]
     Active Substance: DEUTETRABENAZINE
     Indication: Product used for unknown indication
     Dosage: 1 TABLET BY MOUTH IN THE MORNING AND 2 TABLETS AT BEDTIME
     Route: 048

REACTIONS (3)
  - Lethargy [Unknown]
  - Drug ineffective [Unknown]
  - Therapy non-responder [Unknown]
